FAERS Safety Report 6104435-0 (Version None)
Quarter: 2009Q1

REPORT INFORMATION
  Report Type: 
  Country: None (occurrence: None)
  Receive Date: 20090305
  Receipt Date: 20090224
  Transmission Date: 20090719
  Serious: Yes (Other)
  Sender: FDA-Public Use
  Company Number: PHEH2009US01381

PATIENT
  Sex: Female
  Weight: 147.39 kg

DRUGS (7)
  1. GLEEVEC [Suspect]
     Indication: CHRONIC MYELOID LEUKAEMIA
     Dosage: 400 MG, QD
     Route: 048
     Dates: start: 20080205, end: 20090111
  2. PLAVIX [Concomitant]
     Dosage: 75 MG, QD
     Route: 048
  3. LOPRESSOR [Concomitant]
     Dosage: 50 MG, BID
     Route: 048
  4. PROTONIX [Concomitant]
     Dosage: 40 MG, QD
     Route: 048
  5. IMDUR [Concomitant]
     Dosage: 30 MG, QD
     Route: 048
  6. ALLOPURINOL [Concomitant]
     Dosage: 300 MG, QD
     Route: 048
  7. LASIX [Concomitant]
     Dosage: 40 MG, QD
     Route: 048

REACTIONS (6)
  - CHRONIC OBSTRUCTIVE PULMONARY DISEASE [None]
  - DYSPNOEA [None]
  - GAIT DISTURBANCE [None]
  - PLEURAL EFFUSION [None]
  - PULMONARY FUNCTION TEST DECREASED [None]
  - WEIGHT INCREASED [None]
